FAERS Safety Report 4386336-1 (Version None)
Quarter: 2004Q2

REPORT INFORMATION
  Report Type: 
  Country: None (occurrence: None)
  Receive Date: 20040628
  Receipt Date: 20040628
  Transmission Date: 20050107
  Serious: Yes (Life-Threatening)
  Sender: FDA-Public Use
  Company Number: None

PATIENT
  Age: 65 Year
  Sex: Female
  Weight: 135.1719 kg

DRUGS (2)
  1. LANTUS [Suspect]
     Dosage: 10 UNITS PER DAY
  2. HUMALOG [Suspect]
     Dosage: SLIDING SCALE

REACTIONS (4)
  - BLOOD TEST ABNORMAL [None]
  - DRUG INEFFECTIVE [None]
  - MALAISE [None]
  - PHARMACEUTICAL PRODUCT COMPLAINT [None]
